FAERS Safety Report 9199652 (Version 2)
Quarter: 2013Q2

REPORT INFORMATION
  Report Type: Spontaneous
  Country: US (occurrence: US)
  Receive Date: 20130329
  Receipt Date: 20130621
  Transmission Date: 20140414
  Serious: No
  Sender: FDA-Public Use
  Company Number: US-009507513-1303USA008796

PATIENT
  Age: 55 Year
  Sex: Female
  Weight: 81.18 kg

DRUGS (1)
  1. NASONEX [Suspect]
     Indication: HYPERSENSITIVITY
     Dosage: 2 SPRAYS EACH NOSTRIL ONCE DAILY
     Route: 045
     Dates: start: 20130102, end: 20130307

REACTIONS (2)
  - Rash generalised [Not Recovered/Not Resolved]
  - Herpes zoster [Recovered/Resolved]
